FAERS Safety Report 9529981 (Version 2)
Quarter: 2013Q3

REPORT INFORMATION
  Report Type: Report from Study
  Country: FR (occurrence: FR)
  Receive Date: 20130917
  Receipt Date: 20130917
  Transmission Date: 20140515
  Serious: Yes (Hospitalization, Other)
  Sender: FDA-Public Use
  Company Number: PHHY2012FR120174

PATIENT
  Age: 77 Year
  Sex: Male

DRUGS (3)
  1. STI571 [Suspect]
     Indication: CHRONIC MYELOID LEUKAEMIA
     Dosage: UNK UKN, UNK
     Dates: start: 20041022
  2. SPRYCEL//DASATINIB [Suspect]
     Dosage: 100 MG, UNK
  3. TASIGNA [Suspect]
     Dosage: 800 MG, UNK

REACTIONS (4)
  - Aortic stenosis [Recovering/Resolving]
  - Dyspnoea [Not Recovered/Not Resolved]
  - Pleural effusion [Not Recovered/Not Resolved]
  - Cardiac failure [Unknown]
